FAERS Safety Report 11413330 (Version 1)
Quarter: 2015Q3

REPORT INFORMATION
  Report Type: Spontaneous
  Country: US (occurrence: US)
  Receive Date: 20150821
  Receipt Date: 20150821
  Transmission Date: 20151125
  Serious: No
  Sender: FDA-Public Use
  Company Number: US-ELI_LILLY_AND_COMPANY-US201106008394

PATIENT
  Sex: Female

DRUGS (4)
  1. HUMULIN R [Suspect]
     Active Substance: INSULIN HUMAN
  2. NOVOLOG [Concomitant]
     Active Substance: INSULIN ASPART
  3. APIDRA [Concomitant]
     Active Substance: INSULIN GLULISINE
  4. LEVEMIR [Concomitant]
     Active Substance: INSULIN DETEMIR

REACTIONS (8)
  - Blood glucose increased [Recovering/Resolving]
  - Fear of eating [Unknown]
  - Nausea [Unknown]
  - Swelling [Unknown]
  - Blood glucose increased [Unknown]
  - Weight increased [Unknown]
  - Hypoglycaemia [Unknown]
  - Hyperhidrosis [Unknown]

NARRATIVE: CASE EVENT DATE: 20110528
